FAERS Safety Report 6705572-X (Version None)
Quarter: 2010Q2

REPORT INFORMATION
  Report Type: 
  Country: None (occurrence: None)
  Receive Date: 20100503
  Receipt Date: 20100423
  Transmission Date: 20101027
  Serious: No
  Sender: FDA-Public Use
  Company Number: US-BIOGENIDEC-2010BI014117

PATIENT
  Age: 56 Year
  Sex: Female

DRUGS (7)
  1. TYSABRI [Suspect]
     Indication: MULTIPLE SCLEROSIS
     Route: 042
     Dates: start: 20100422
  2. LEVETIRACETAM [Concomitant]
  3. NAMENDA [Concomitant]
  4. OXAZEPAM [Concomitant]
  5. GABAPENTIN [Concomitant]
  6. BACLOFEN [Concomitant]
  7. FLUOXETINE [Concomitant]

REACTIONS (2)
  - GENERAL SYMPTOM [None]
  - HEADACHE [None]
